FAERS Safety Report 24625571 (Version 7)
Quarter: 2025Q2

REPORT INFORMATION
  Report Type: Spontaneous
  Country: US (occurrence: US)
  Receive Date: 20241115
  Receipt Date: 20250403
  Transmission Date: 20250717
  Serious: Yes (Hospitalization)
  Sender: AMGEN
  Company Number: US-AMGEN-USASP2024221808

PATIENT
  Age: 58 Year
  Sex: Female

DRUGS (43)
  1. AIMOVIG [Suspect]
     Active Substance: ERENUMAB-AOOE
     Indication: Migraine prophylaxis
     Dosage: 140 MILLIGRAM, QMO
     Route: 058
     Dates: start: 20241001
  2. NURTEC ODT [Concomitant]
     Active Substance: RIMEGEPANT SULFATE
     Indication: Migraine
  3. ZAVZPRET [Concomitant]
     Active Substance: ZAVEGEPANT HYDROCHLORIDE
     Indication: Migraine
  4. LIDOCAINE [Concomitant]
     Active Substance: LIDOCAINE
     Indication: Migraine
  5. ALPRAZOLAM [Concomitant]
     Active Substance: ALPRAZOLAM
     Indication: Anxiety
     Dosage: 2 MILLIGRAM, TID
     Route: 048
  6. PROZAC [Concomitant]
     Active Substance: FLUOXETINE HYDROCHLORIDE
     Indication: Depression
     Dosage: 20 MILLIGRAM, QD, TAKE 2 CAPSULE DAILY AS NEEDED
     Route: 048
  7. PHENERGAN [Concomitant]
     Active Substance: PROMETHAZINE HYDROCHLORIDE
     Route: 048
  8. Poly-histine-dm [Concomitant]
     Dosage: UNK UNK, Q4H, 10-MG,5MG,25MG/5ML LIQUID 10 ML ORALLY
     Route: 048
  9. LEVOFLOXACIN [Concomitant]
     Active Substance: LEVOFLOXACIN
     Dosage: 500 MILLIGRAM, QD
     Route: 048
  10. PANTOPRAZOLE [Concomitant]
     Active Substance: PANTOPRAZOLE
     Dosage: 40 MILLIGRAM, QD
     Route: 048
  11. ONDANSETRON [Concomitant]
     Active Substance: ONDANSETRON
     Dosage: 8 MILLIGRAM, TID
     Route: 048
  12. LIPITOR [Concomitant]
     Active Substance: ATORVASTATIN CALCIUM
     Dates: start: 20241110
  13. Ec [Concomitant]
     Dosage: 81 MILLIGRAM, QD
     Dates: start: 20241110
  14. PLAVIX [Concomitant]
     Active Substance: CLOPIDOGREL BISULFATE
     Dosage: 75 MILLIGRAM, QD
     Dates: start: 20241110
  15. TYLENOL [Concomitant]
     Active Substance: ACETAMINOPHEN
     Dosage: 650 MILLIGRAM, Q6H
     Dates: start: 20241110
  16. ZOFRAN [Concomitant]
     Active Substance: ONDANSETRON HYDROCHLORIDE
     Dates: start: 20241110
  17. ALUMINUM HYDROXIDE [Concomitant]
     Active Substance: ALUMINUM HYDROXIDE
     Dosage: 30 MILLIGRAM, Q6H
     Dates: start: 20241110
  18. MAGNESIUM HYDROXIDE [Concomitant]
     Active Substance: MAGNESIUM HYDROXIDE
     Dosage: 30 MILLIGRAM, Q6H
     Dates: start: 20241110
  19. SIMETHICONE (DIMETHICONE) [Concomitant]
     Active Substance: DIMETHICONE
     Dosage: 30 MILLIGRAM, Q6H
     Dates: start: 20241110
  20. MILK OF MAGNESIA [Concomitant]
     Active Substance: MAGNESIUM HYDROXIDE
     Dates: start: 20241110
  21. BISACODYL [Concomitant]
     Active Substance: BISACODYL
     Dates: start: 20241110
  22. ROBITUSSIN DM [Concomitant]
     Active Substance: DEXTROMETHORPHAN HYDROBROMIDE\GUAIFENESIN
     Dosage: 10 MILLIGRAM, Q6H
     Dates: start: 20241110
  23. BENADRYL ALLERGY [Concomitant]
     Active Substance: DIPHENHYDRAMINE HYDROCHLORIDE
     Dates: start: 20241110
  24. Porcine artery [Concomitant]
     Dates: start: 20241110
  25. OMNIPAQUE [Concomitant]
     Active Substance: IOHEXOL
     Dates: start: 20241110
  26. ESGIC [Concomitant]
     Active Substance: ACETAMINOPHEN\BUTALBITAL\CAFFEINE
     Indication: Headache
     Route: 048
  27. GLYCERIN [Concomitant]
     Active Substance: GLYCERIN
     Indication: Faeces hard
     Route: 054
     Dates: start: 20231209
  28. MAGNESIUM CITRATE [Concomitant]
     Active Substance: MAGNESIUM CITRATE
     Route: 048
     Dates: start: 20231209
  29. POLYETHYLENE GLYCOL [Concomitant]
     Active Substance: POLYETHYLENE GLYCOL
     Route: 048
     Dates: start: 20231209
  30. VALACYCLOVIR [Concomitant]
     Active Substance: VALACYCLOVIR HYDROCHLORIDE
     Dosage: 500 MILLIGRAM, BID
     Route: 048
  31. ASPIRIN [Concomitant]
     Active Substance: ASPIRIN
     Route: 048
  32. ATORVASTATIN [Concomitant]
     Active Substance: ATORVASTATIN
     Route: 048
  33. CLOPIDOGREL [Concomitant]
     Active Substance: CLOPIDOGREL BISULFATE
     Dosage: 75 MILLIGRAM, QD
     Route: 048
  34. DIVALPROEX SODIUM [Concomitant]
     Active Substance: DIVALPROEX SODIUM
     Dosage: 500 MILLIGRAM, QD
     Route: 048
  35. FLUOXETINE [Concomitant]
     Active Substance: FLUOXETINE HYDROCHLORIDE
     Dosage: 40 MILLIGRAM, QD
     Route: 048
  36. GABAPENTIN [Concomitant]
     Active Substance: GABAPENTIN
     Route: 048
  37. MONTELUKAST [Concomitant]
     Active Substance: MONTELUKAST
     Route: 048
  38. TOPIRAMATE [Concomitant]
     Active Substance: TOPIRAMATE
     Dosage: 100 MILLIGRAM, BID
     Route: 048
  39. TIZANIDINE [Concomitant]
     Active Substance: TIZANIDINE
     Indication: Muscle spasms
     Route: 048
  40. COLCHICINE [Concomitant]
     Active Substance: COLCHICINE
     Dosage: 0.6 MILLIGRAM, BID
     Route: 048
  41. NITROGLYCERIN [Concomitant]
     Active Substance: NITROGLYCERIN
  42. SODIUM CHLORIDE [Concomitant]
     Active Substance: SODIUM CHLORIDE
     Dosage: 3 MILLILITER, BID
     Route: 040
  43. METOPROLOL [Concomitant]
     Active Substance: METOPROLOL
     Route: 048

REACTIONS (53)
  - Stress cardiomyopathy [Unknown]
  - Viral infection [Unknown]
  - Viral myocarditis [Recovering/Resolving]
  - Myocardial necrosis marker increased [Unknown]
  - Chest pain [Recovered/Resolved]
  - Troponin I increased [Recovering/Resolving]
  - Anaemia [Unknown]
  - Mitral valve prolapse [Unknown]
  - Pneumonia [Unknown]
  - Pericardial effusion [Recovering/Resolving]
  - Viral pericarditis [Recovering/Resolving]
  - Pulmonary hypertension [Unknown]
  - Acute myocardial infarction [Unknown]
  - Pulmonary embolism [Unknown]
  - Gastrointestinal haemorrhage [Unknown]
  - Ejection fraction decreased [Unknown]
  - Electrolyte imbalance [Unknown]
  - Pneumothorax [Unknown]
  - Infection [Unknown]
  - Pleurisy [Recovered/Resolved]
  - Arrhythmia [Unknown]
  - Chronic obstructive pulmonary disease [Unknown]
  - Asthma [Unknown]
  - Blood pressure decreased [Unknown]
  - Intestinal perforation [Unknown]
  - Muscle spasms [Unknown]
  - Costochondritis [Unknown]
  - Empyema [Unknown]
  - Pericarditis [Recovering/Resolving]
  - Aortic aneurysm [Unknown]
  - Myocarditis [Recovering/Resolving]
  - Oesophageal perforation [Unknown]
  - Autoimmune disorder [Unknown]
  - General symptom [Recovering/Resolving]
  - Pleuritic pain [Recovering/Resolving]
  - Sinus tachycardia [Unknown]
  - Blood glucose increased [Unknown]
  - Carbon dioxide decreased [Unknown]
  - Monocyte count increased [Unknown]
  - Mean platelet volume increased [Unknown]
  - Fibrin D dimer increased [Unknown]
  - Anion gap increased [Unknown]
  - Eosinophil count decreased [Unknown]
  - Blood cholesterol increased [Unknown]
  - Blood triglycerides increased [Unknown]
  - Low density lipoprotein increased [Unknown]
  - LDL/HDL ratio increased [Unknown]
  - Injection site swelling [Recovering/Resolving]
  - Injection site hypoaesthesia [Not Recovered/Not Resolved]
  - Injury associated with device [Unknown]
  - Administration site pain [Unknown]
  - Injection site haemorrhage [Unknown]
  - Wrong technique in product usage process [Unknown]

NARRATIVE: CASE EVENT DATE: 20241101
